FAERS Safety Report 22992819 (Version 2)
Quarter: 2023Q4

REPORT INFORMATION
  Report Type: Report from Study
  Country: CA (occurrence: CA)
  Receive Date: 20230927
  Receipt Date: 20231002
  Transmission Date: 20240109
  Serious: Yes (Other)
  Sender: FDA-Public Use
  Company Number: CA-BEH-2023163714

PATIENT
  Age: 67 Year
  Sex: Female
  Weight: 66 kg

DRUGS (8)
  1. HIZENTRA [Suspect]
     Active Substance: HUMAN IMMUNOGLOBULIN G
     Indication: Secondary immunodeficiency
     Dosage: 8 GRAM, QW
     Route: 065
     Dates: start: 20230918
  2. HIZENTRA [Suspect]
     Active Substance: HUMAN IMMUNOGLOBULIN G
     Dosage: 8 GRAM, QW
     Route: 065
     Dates: start: 20230918
  3. BRUKINSA [Concomitant]
     Active Substance: ZANUBRUTINIB
     Indication: Chemotherapy
  4. VITAMIN D NOS [Concomitant]
     Active Substance: VITAMIN D NOS
  5. VENLAFAXINE [Concomitant]
     Active Substance: VENLAFAXINE HYDROCHLORIDE
  6. PREMARIN [Concomitant]
     Active Substance: ESTROGENS, CONJUGATED
  7. BISOPROLOL [Concomitant]
     Active Substance: BISOPROLOL\BISOPROLOL FUMARATE
  8. ASPIRIN [Concomitant]
     Active Substance: ASPIRIN

REACTIONS (6)
  - Neurogenic shock [Recovered/Resolved]
  - Heat stroke [Recovered/Resolved]
  - Nausea [Recovered/Resolved]
  - Injection site mass [Unknown]
  - Injection site erythema [Unknown]
  - COVID-19 [Unknown]

NARRATIVE: CASE EVENT DATE: 20230901
